FAERS Safety Report 5318728-8 (Version None)
Quarter: 2007Q2

REPORT INFORMATION
  Report Type: 
  Country: None (occurrence: None)
  Receive Date: 20070503
  Receipt Date: 20070424
  Transmission Date: 20071010
  Serious: Yes (Hospitalization)
  Sender: FDA-Public Use
  Company Number: 2007-02036

PATIENT
  Age: 53 Year
  Sex: Female

DRUGS (5)
  1. CARBOPLATIN [Suspect]
     Indication: LUNG ADENOCARCINOMA STAGE IV
     Dosage: 260 MG, SINGLE DOSE ON CYCLE 6, INTRAVENOUS
     Route: 042
     Dates: start: 20040101, end: 20040101
  2. CARBOPLATIN [Suspect]
     Indication: LUNG CANCER METASTATIC
     Dosage: 260 MG, SINGLE DOSE ON CYCLE 6, INTRAVENOUS
     Route: 042
     Dates: start: 20040101, end: 20040101
  3. CISPLATIN [Suspect]
     Indication: LUNG ADENOCARCINOMA STAGE IV
     Dosage: 70 MG/M2, Q3 WKS X 5 CYCLES, INTRAVENOUS
     Route: 042
     Dates: start: 20040901
  4. CISPLATIN [Suspect]
     Indication: LUNG CANCER METASTATIC
     Dosage: 70 MG/M2, Q3 WKS X 5 CYCLES, INTRAVENOUS
     Route: 042
     Dates: start: 20040901
  5. GEMCITABINE [Concomitant]

REACTIONS (4)
  - ABDOMINAL PAIN [None]
  - BLINDNESS CORTICAL [None]
  - CONVULSION [None]
  - REVERSIBLE POSTERIOR LEUKOENCEPHALOPATHY SYNDROME [None]
